FAERS Safety Report 9827907 (Version 1)
Quarter: 2014Q1

REPORT INFORMATION
  Report Type: Other
  Country: US (occurrence: US)
  Receive Date: 20140117
  Receipt Date: 20140117
  Transmission Date: 20141002
  Serious: Yes (Death)
  Sender: FDA-Public Use
  Company Number: US-LEHIGH_VALLEY-USA-POI0580201400064

PATIENT
  Age: 29 Year
  Sex: Male

DRUGS (3)
  1. OXYCODONE HCL CAPSULES [Suspect]
     Dates: end: 2012
  2. ALPRAZOLAM [Suspect]
     Dates: end: 2012
  3. METHADONE [Suspect]
     Dates: end: 2012

REACTIONS (3)
  - Poisoning deliberate [None]
  - Cardiac arrest [None]
  - Respiratory arrest [None]
